FAERS Safety Report 7475778-3 (Version None)
Quarter: 2011Q2

REPORT INFORMATION
  Report Type: 
  Country: None (occurrence: None)
  Receive Date: 20110512
  Receipt Date: 20110504
  Transmission Date: 20111010
  Serious: Yes (Death)
  Sender: FDA-Public Use
  Company Number: FR-CELGENEUS-056-50794-11021587

PATIENT
  Age: 83 Year
  Sex: Male

DRUGS (1)
  1. VIDAZA [Suspect]
     Indication: REFRACTORY ANAEMIA WITH AN EXCESS OF BLASTS
     Route: 050

REACTIONS (1)
  - BONE MARROW FAILURE [None]
